FAERS Safety Report 11690962 (Version 1)
Quarter: 2015Q4

REPORT INFORMATION
  Report Type: Spontaneous
  Country: JP (occurrence: JP)
  Receive Date: 20151102
  Receipt Date: 20151102
  Transmission Date: 20160304
  Serious: Yes (Death, Life-Threatening)
  Sender: FDA-Public Use
  Company Number: JP-AKORN PHARMACEUTICALS-2015AKN00629

PATIENT
  Age: 66 Year
  Sex: Female

DRUGS (13)
  1. ZIOPTAN [Suspect]
     Active Substance: TAFLUPROST
     Indication: GLAUCOMA
     Dosage: 1 GTT, QD OU
     Route: 047
     Dates: start: 20131204
  2. FAMOTIDINE. [Concomitant]
     Active Substance: FAMOTIDINE
     Dosage: UNK TABLETS, UNK
     Dates: start: 20140203
  3. HYALEIN [Concomitant]
     Active Substance: HYALURONATE SODIUM
     Dosage: UNK GTT, UNK
     Route: 047
  4. MUCOSTA [Concomitant]
     Active Substance: REBAMIPIDE
     Dosage: UNK TABLETS, UNK
  5. SODIUM PICOSULFATE [Concomitant]
     Active Substance: SODIUM PICOSULFATE
     Dosage: UNK
     Route: 051
     Dates: start: 20141017, end: 20141111
  6. MUBEN [Concomitant]
     Dosage: UNK
     Dates: start: 20141017, end: 20141111
  7. SEPAZON [Concomitant]
     Active Substance: CLOXAZOLAM
     Dosage: UNK, POWDER, UNK
  8. TRILAFON [Concomitant]
     Active Substance: PERPHENAZINE
     Dosage: UNK, POWDER
  9. LOXONIN [Concomitant]
     Active Substance: LOXOPROFEN SODIUM
     Dosage: UNK TABLETS, UNK
  10. LACTOSE [Concomitant]
     Active Substance: LACTOSE
     Dosage: UNK
  11. NORVASC [Concomitant]
     Active Substance: AMLODIPINE BESYLATE
     Dosage: UNK TABLETS, UNK
  12. GAMOFA D [Concomitant]
     Active Substance: FAMOTIDINE
     Dosage: UNK TABLETS, UNK
     Dates: end: 20140203
  13. TASMOLIN [Concomitant]
     Active Substance: BIPERIDEN
     Dosage: UNK, POWDER

REACTIONS (1)
  - Hepatic cancer [Fatal]

NARRATIVE: CASE EVENT DATE: 20140326
